FAERS Safety Report 19353640 (Version 2)
Quarter: 2021Q2

REPORT INFORMATION
  Report Type: Spontaneous
  Country: US (occurrence: US)
  Receive Date: 20210531
  Receipt Date: 20210531
  Transmission Date: 20210717
  Serious: Yes (Death, Other)
  Sender: FDA-Public Use
  Company Number: US-PURDUE PHARMA-USA-2020-0157420

PATIENT
  Age: 32 Year
  Sex: Male

DRUGS (1)
  1. OXYCODONE HYDROCHLORIDE (SIMILAR TO NDA 22?272) [Suspect]
     Active Substance: OXYCODONE HYDROCHLORIDE
     Indication: PRODUCT USED FOR UNKNOWN INDICATION
     Dosage: 5 MG TAKE 2 TABLETS, TID,
     Route: 048
     Dates: start: 201401, end: 20170716

REACTIONS (2)
  - Drug dependence [Unknown]
  - Overdose [Fatal]

NARRATIVE: CASE EVENT DATE: 20170716
